FAERS Safety Report 5991604-3 (Version None)
Quarter: 2008Q4

REPORT INFORMATION
  Report Type: 
  Country: None (occurrence: None)
  Receive Date: 20081202
  Receipt Date: 20071129
  Transmission Date: 20090506
  Serious: Yes (Other)
  Sender: FDA-Public Use
  Company Number: WAES 0612USA03080

PATIENT
  Age: 67 Year
  Sex: Female

DRUGS (2)
  1. FOSAMAX [Suspect]
     Indication: OSTEOPOROSIS
     Dosage: 10 MG/DAILY/PO
     Route: 048
     Dates: start: 19980608, end: 20001201
  2. FOSAMAX [Suspect]
     Indication: OSTEOPOROSIS
     Dosage: 70 MG/WKY/PO
     Route: 048
     Dates: start: 20010123, end: 20031101

REACTIONS (13)
  - ATROPHY [None]
  - BLOOD CHOLESTEROL INCREASED [None]
  - BLOOD PRESSURE INCREASED [None]
  - BONE DENSITY DECREASED [None]
  - ISCHAEMIA [None]
  - MENIERE'S DISEASE [None]
  - OSTEOMYELITIS [None]
  - OSTEONECROSIS [None]
  - POROKERATOSIS [None]
  - SINUS DISORDER [None]
  - SKIN LESION [None]
  - SKIN PAPILLOMA [None]
  - VERTIGO POSITIONAL [None]
